FAERS Safety Report 6144506-6 (Version None)
Quarter: 2009Q2

REPORT INFORMATION
  Report Type: 
  Country: None (occurrence: None)
  Receive Date: 20090406
  Receipt Date: 20090323
  Transmission Date: 20091009
  Serious: Yes (Other)
  Sender: FDA-Public Use
  Company Number: US-ROCHE-619291

PATIENT
  Sex: Male
  Weight: 113.4 kg

DRUGS (1)
  1. ACCUTANE [Suspect]
     Indication: ACNE
     Dosage: FREQUENCY: DAILY (QD)
     Route: 048
     Dates: start: 20081111, end: 20090303

REACTIONS (1)
  - FACIAL PALSY [None]
